FAERS Safety Report 7478364-4 (Version None)
Quarter: 2011Q2

REPORT INFORMATION
  Report Type: 
  Country: None (occurrence: None)
  Receive Date: 20110513
  Receipt Date: 20100521
  Transmission Date: 20111010
  Serious: No
  Sender: FDA-Public Use
  Company Number: US-PFIZER INC-2010064342

PATIENT
  Age: 77 Year
  Sex: Male
  Weight: 85.3 kg

DRUGS (6)
  1. UROXATRAL [Concomitant]
     Indication: BENIGN PROSTATIC HYPERPLASIA
     Dosage: 10 MG, 1X/DAY
     Route: 048
  2. VERELAN [Concomitant]
     Indication: HEART RATE ABNORMAL
     Dosage: 120 MG, 1X/DAY
     Route: 048
  3. NEURONTIN [Suspect]
     Indication: PRURITUS
     Dosage: 300 MG, 1X/DAY
     Route: 048
  4. WARFARIN SODIUM [Concomitant]
     Indication: ANTICOAGULANT THERAPY
     Dosage: 6 MG, 1X/DAY
     Route: 048
  5. CELEBREX [Suspect]
     Indication: NECK INJURY
     Dosage: 200 MG, 1X/DAY
     Route: 048
     Dates: start: 19940101
  6. CELEBREX [Suspect]
     Indication: INFLAMMATION

REACTIONS (2)
  - DRUG INEFFECTIVE [None]
  - PRURITUS [None]
